FAERS Safety Report 24082936 (Version 7)
Quarter: 2025Q3

REPORT INFORMATION
  Report Type: Spontaneous
  Country: CA (occurrence: CA)
  Receive Date: 20240712
  Receipt Date: 20250801
  Transmission Date: 20251021
  Serious: Yes (Death, Life-Threatening, Hospitalization, Disabling, Congenital Anomaly, Other)
  Sender: SANDOZ
  Company Number: CA-SANDOZ-SDZ2024CA063961

PATIENT
  Age: 40 Year
  Sex: Female
  Weight: 96 kg

DRUGS (319)
  1. ACETAMINOPHEN [Suspect]
     Active Substance: ACETAMINOPHEN
     Indication: Rheumatoid arthritis
     Route: 065
  2. ACETAMINOPHEN [Suspect]
     Active Substance: ACETAMINOPHEN
     Route: 065
  3. ACETAMINOPHEN [Suspect]
     Active Substance: ACETAMINOPHEN
     Route: 065
  4. ACETAMINOPHEN [Suspect]
     Active Substance: ACETAMINOPHEN
     Route: 065
  5. ACETAMINOPHEN [Suspect]
     Active Substance: ACETAMINOPHEN
     Route: 065
  6. ACETAMINOPHEN [Suspect]
     Active Substance: ACETAMINOPHEN
     Route: 065
  7. ACTEMRA [Suspect]
     Active Substance: TOCILIZUMAB
     Route: 058
  8. ACTEMRA [Suspect]
     Active Substance: TOCILIZUMAB
     Route: 065
  9. ACTEMRA [Suspect]
     Active Substance: TOCILIZUMAB
     Indication: Rheumatoid arthritis
     Dosage: 25 MG, QW
     Route: 058
  10. ACTEMRA [Suspect]
     Active Substance: TOCILIZUMAB
     Route: 058
  11. ACTEMRA [Suspect]
     Active Substance: TOCILIZUMAB
     Route: 058
  12. ACTEMRA [Suspect]
     Active Substance: TOCILIZUMAB
     Route: 065
  13. ACTEMRA [Suspect]
     Active Substance: TOCILIZUMAB
     Route: 058
  14. ACTEMRA [Suspect]
     Active Substance: TOCILIZUMAB
     Route: 058
  15. ACTEMRA [Suspect]
     Active Substance: TOCILIZUMAB
     Route: 065
  16. ACTEMRA [Suspect]
     Active Substance: TOCILIZUMAB
     Route: 065
  17. ACTEMRA [Suspect]
     Active Substance: TOCILIZUMAB
     Route: 058
  18. ACTEMRA [Suspect]
     Active Substance: TOCILIZUMAB
     Route: 065
  19. ACTEMRA [Suspect]
     Active Substance: TOCILIZUMAB
     Route: 065
  20. ACTEMRA [Suspect]
     Active Substance: TOCILIZUMAB
     Route: 065
  21. ACTEMRA [Suspect]
     Active Substance: TOCILIZUMAB
     Route: 016
  22. ACTEMRA [Suspect]
     Active Substance: TOCILIZUMAB
     Route: 050
  23. ACTEMRA [Suspect]
     Active Substance: TOCILIZUMAB
     Route: 058
  24. ACTEMRA [Suspect]
     Active Substance: TOCILIZUMAB
     Route: 065
  25. AIMOVIG [Suspect]
     Active Substance: ERENUMAB-AOOE
     Indication: Migraine
     Route: 065
  26. AIMOVIG [Suspect]
     Active Substance: ERENUMAB-AOOE
     Route: 065
  27. AIMOVIG [Suspect]
     Active Substance: ERENUMAB-AOOE
     Route: 065
  28. ALENDRONIC ACID [Suspect]
     Active Substance: ALENDRONIC ACID
     Route: 048
  29. ALENDRONIC ACID [Suspect]
     Active Substance: ALENDRONIC ACID
     Route: 048
  30. ALENDRONIC ACID [Suspect]
     Active Substance: ALENDRONIC ACID
     Route: 048
  31. ALENDRONIC ACID [Suspect]
     Active Substance: ALENDRONIC ACID
     Route: 065
  32. ALENDRONIC ACID [Suspect]
     Active Substance: ALENDRONIC ACID
     Indication: Product used for unknown indication
     Route: 016
  33. ALENDRONIC ACID [Suspect]
     Active Substance: ALENDRONIC ACID
     Indication: Rheumatoid arthritis
     Route: 065
  34. PREDNISONE [Suspect]
     Active Substance: PREDNISONE
     Dosage: 20 MG, QD
     Route: 048
  35. PREDNISONE [Suspect]
     Active Substance: PREDNISONE
     Indication: Rheumatoid arthritis
     Route: 048
  36. PREDNISONE [Suspect]
     Active Substance: PREDNISONE
     Route: 048
  37. APREMILAST [Suspect]
     Active Substance: APREMILAST
     Dosage: 6 MG, QD
     Route: 065
  38. APREMILAST [Suspect]
     Active Substance: APREMILAST
     Route: 065
  39. APREMILAST [Suspect]
     Active Substance: APREMILAST
     Indication: Rheumatoid arthritis
     Route: 065
  40. ARAVA [Suspect]
     Active Substance: LEFLUNOMIDE
     Dosage: 20 MG, QD
     Route: 048
  41. ARAVA [Suspect]
     Active Substance: LEFLUNOMIDE
     Route: 048
  42. ARAVA [Suspect]
     Active Substance: LEFLUNOMIDE
     Route: 048
  43. ARAVA [Suspect]
     Active Substance: LEFLUNOMIDE
     Route: 065
  44. ARAVA [Suspect]
     Active Substance: LEFLUNOMIDE
     Route: 065
  45. ARAVA [Suspect]
     Active Substance: LEFLUNOMIDE
     Route: 065
  46. ARAVA [Suspect]
     Active Substance: LEFLUNOMIDE
     Indication: Rheumatoid arthritis
     Route: 048
  47. BERINERT [Suspect]
     Active Substance: HUMAN C1-ESTERASE INHIBITOR
     Indication: Product used for unknown indication
     Route: 065
  48. BOTULINUM TOXIN TYPE A [Suspect]
     Active Substance: BOTULINUM TOXIN TYPE A
     Indication: Product used for unknown indication
     Route: 065
  49. BUTRANS [Suspect]
     Active Substance: BUPRENORPHINE
     Indication: Product used for unknown indication
     Route: 065
  50. BUTRANS [Suspect]
     Active Substance: BUPRENORPHINE
     Route: 065
  51. CANDESARTAN [Suspect]
     Active Substance: CANDESARTAN
     Indication: Migraine
     Route: 048
  52. CANDESARTAN [Suspect]
     Active Substance: CANDESARTAN
     Route: 048
  53. CELECOXIB [Suspect]
     Active Substance: CELECOXIB
     Indication: Product used for unknown indication
     Dosage: 1 DF, QD
     Route: 065
  54. CELECOXIB [Suspect]
     Active Substance: CELECOXIB
     Dosage: 2 DF, QD
     Route: 065
  55. CERTOLIZUMAB PEGOL [Suspect]
     Active Substance: CERTOLIZUMAB PEGOL
     Indication: Product used for unknown indication
     Route: 058
  56. CERTOLIZUMAB PEGOL [Suspect]
     Active Substance: CERTOLIZUMAB PEGOL
     Route: 058
  57. CERTOLIZUMAB PEGOL [Suspect]
     Active Substance: CERTOLIZUMAB PEGOL
     Route: 058
  58. CERTOLIZUMAB PEGOL [Suspect]
     Active Substance: CERTOLIZUMAB PEGOL
     Route: 065
  59. CERTOLIZUMAB PEGOL [Suspect]
     Active Substance: CERTOLIZUMAB PEGOL
     Route: 065
  60. CERTOLIZUMAB PEGOL [Suspect]
     Active Substance: CERTOLIZUMAB PEGOL
     Route: 065
  61. CETIRIZINE HYDROCHLORIDE [Suspect]
     Active Substance: CETIRIZINE HYDROCHLORIDE
     Route: 048
  62. CETIRIZINE HYDROCHLORIDE [Suspect]
     Active Substance: CETIRIZINE HYDROCHLORIDE
     Indication: Off label use
     Route: 048
  63. CETIRIZINE HYDROCHLORIDE [Suspect]
     Active Substance: CETIRIZINE HYDROCHLORIDE
     Indication: Rheumatoid arthritis
     Route: 048
  64. CETIRIZINE HYDROCHLORIDE [Suspect]
     Active Substance: CETIRIZINE HYDROCHLORIDE
     Route: 065
  65. CETIRIZINE HYDROCHLORIDE [Suspect]
     Active Substance: CETIRIZINE HYDROCHLORIDE
     Route: 065
  66. CETIRIZINE HYDROCHLORIDE [Suspect]
     Active Substance: CETIRIZINE HYDROCHLORIDE
     Route: 065
  67. CETIRIZINE HYDROCHLORIDE [Suspect]
     Active Substance: CETIRIZINE HYDROCHLORIDE
     Route: 065
  68. CETIRIZINE HYDROCHLORIDE [Suspect]
     Active Substance: CETIRIZINE HYDROCHLORIDE
     Route: 065
  69. CHOLECALCIFEROL [Suspect]
     Active Substance: CHOLECALCIFEROL
     Indication: Product used for unknown indication
     Route: 065
  70. CIMZIA [Suspect]
     Active Substance: CERTOLIZUMAB PEGOL
     Indication: Rheumatoid arthritis
     Route: 058
  71. CIMZIA [Suspect]
     Active Substance: CERTOLIZUMAB PEGOL
     Indication: Psoriasis
     Route: 058
  72. CIMZIA [Suspect]
     Active Substance: CERTOLIZUMAB PEGOL
     Route: 058
  73. CIMZIA [Suspect]
     Active Substance: CERTOLIZUMAB PEGOL
     Route: 058
  74. CIMZIA [Suspect]
     Active Substance: CERTOLIZUMAB PEGOL
     Route: 058
  75. CIMZIA [Suspect]
     Active Substance: CERTOLIZUMAB PEGOL
     Route: 065
  76. CIMZIA [Suspect]
     Active Substance: CERTOLIZUMAB PEGOL
     Route: 065
  77. CIMZIA [Suspect]
     Active Substance: CERTOLIZUMAB PEGOL
     Route: 065
  78. COSENTYX [Suspect]
     Active Substance: SECUKINUMAB
     Indication: Psoriatic arthropathy
     Route: 065
  79. COSENTYX [Suspect]
     Active Substance: SECUKINUMAB
     Dosage: 20 MG, QD
     Route: 065
  80. COSENTYX [Suspect]
     Active Substance: SECUKINUMAB
     Dosage: 20 MG, QD
     Route: 065
  81. COSENTYX [Suspect]
     Active Substance: SECUKINUMAB
     Route: 058
  82. COSENTYX [Suspect]
     Active Substance: SECUKINUMAB
     Route: 048
  83. COSENTYX [Suspect]
     Active Substance: SECUKINUMAB
     Indication: Rheumatoid arthritis
     Route: 065
  84. DICLOFENAC [Suspect]
     Active Substance: DICLOFENAC
     Indication: Product used for unknown indication
     Route: 058
  85. DICLOFENAC [Suspect]
     Active Substance: DICLOFENAC
     Route: 065
  86. DICLOFENAC DIETHYLAMINE [Suspect]
     Active Substance: DICLOFENAC DIETHYLAMINE
     Indication: Product used for unknown indication
     Route: 058
  87. DICLOFENAC DIETHYLAMINE [Suspect]
     Active Substance: DICLOFENAC DIETHYLAMINE
     Route: 065
  88. DICLOFENAC SODIUM [Suspect]
     Active Substance: DICLOFENAC SODIUM
     Route: 065
  89. DICLOFENAC SODIUM [Suspect]
     Active Substance: DICLOFENAC SODIUM
     Indication: Product used for unknown indication
     Route: 058
  90. DICLOFENAC SODIUM [Suspect]
     Active Substance: DICLOFENAC SODIUM
     Route: 065
  91. DICLOFENAC SODIUM [Suspect]
     Active Substance: DICLOFENAC SODIUM
     Route: 065
  92. DESOXIMETASONE [Suspect]
     Active Substance: DESOXIMETASONE
     Route: 048
  93. DESOXIMETASONE [Suspect]
     Active Substance: DESOXIMETASONE
     Route: 065
  94. DESOXIMETASONE [Suspect]
     Active Substance: DESOXIMETASONE
     Route: 048
  95. DESOXIMETASONE [Suspect]
     Active Substance: DESOXIMETASONE
     Route: 058
  96. DESOXIMETASONE [Suspect]
     Active Substance: DESOXIMETASONE
     Route: 058
  97. DESOXIMETASONE [Suspect]
     Active Substance: DESOXIMETASONE
     Indication: Rheumatoid arthritis
     Route: 065
  98. DESOXIMETASONE [Suspect]
     Active Substance: DESOXIMETASONE
     Route: 065
  99. DESOXIMETASONE [Suspect]
     Active Substance: DESOXIMETASONE
     Route: 065
  100. DESOXIMETASONE [Suspect]
     Active Substance: DESOXIMETASONE
     Route: 048
  101. DOMPERIDONE MALEATE [Suspect]
     Active Substance: DOMPERIDONE MALEATE
     Indication: Product used for unknown indication
     Route: 065
  102. ERELZI [Suspect]
     Active Substance: ETANERCEPT-SZZS
     Indication: Rheumatoid arthritis
     Route: 058
  103. ERELZI [Suspect]
     Active Substance: ETANERCEPT-SZZS
     Route: 058
  104. ERELZI [Suspect]
     Active Substance: ETANERCEPT-SZZS
     Route: 058
  105. ERELZI [Suspect]
     Active Substance: ETANERCEPT-SZZS
     Route: 065
  106. ERGOCALCIFEROL [Suspect]
     Active Substance: ERGOCALCIFEROL
     Indication: Rheumatoid arthritis
     Route: 065
  107. ERGOCALCIFEROL [Suspect]
     Active Substance: ERGOCALCIFEROL
     Route: 065
  108. ERGOCALCIFEROL [Suspect]
     Active Substance: ERGOCALCIFEROL
     Route: 065
  109. ENBREL [Suspect]
     Active Substance: ETANERCEPT
     Indication: Rheumatoid arthritis
     Dosage: 10 MG, QW
     Route: 065
  110. ENBREL [Suspect]
     Active Substance: ETANERCEPT
     Route: 058
  111. ENBREL [Suspect]
     Active Substance: ETANERCEPT
     Dosage: 50 MG, QW
     Route: 058
  112. ENBREL [Suspect]
     Active Substance: ETANERCEPT
     Route: 058
  113. ENBREL [Suspect]
     Active Substance: ETANERCEPT
     Route: 058
  114. ENBREL [Suspect]
     Active Substance: ETANERCEPT
     Route: 058
  115. ENBREL [Suspect]
     Active Substance: ETANERCEPT
     Route: 058
  116. ENBREL [Suspect]
     Active Substance: ETANERCEPT
     Route: 058
  117. ENBREL [Suspect]
     Active Substance: ETANERCEPT
     Route: 058
  118. ENBREL [Suspect]
     Active Substance: ETANERCEPT
     Route: 058
  119. ENBREL [Suspect]
     Active Substance: ETANERCEPT
     Route: 058
  120. ENBREL [Suspect]
     Active Substance: ETANERCEPT
     Route: 065
  121. ENBREL [Suspect]
     Active Substance: ETANERCEPT
     Route: 065
  122. ENBREL [Suspect]
     Active Substance: ETANERCEPT
     Route: 065
  123. ENBREL [Suspect]
     Active Substance: ETANERCEPT
     Route: 065
  124. ENBREL [Suspect]
     Active Substance: ETANERCEPT
     Route: 065
  125. FOLIC ACID [Suspect]
     Active Substance: FOLIC ACID
     Route: 048
  126. FOLIC ACID [Suspect]
     Active Substance: FOLIC ACID
     Route: 065
  127. FOLIC ACID [Suspect]
     Active Substance: FOLIC ACID
     Route: 058
  128. FOLIC ACID [Suspect]
     Active Substance: FOLIC ACID
     Route: 065
  129. FOLIC ACID [Suspect]
     Active Substance: FOLIC ACID
     Route: 048
  130. FOLIC ACID [Suspect]
     Active Substance: FOLIC ACID
     Route: 065
  131. FOLIC ACID [Suspect]
     Active Substance: FOLIC ACID
     Route: 048
  132. FOLIC ACID [Suspect]
     Active Substance: FOLIC ACID
     Indication: Rheumatoid arthritis
     Route: 065
  133. FOLIC ACID [Suspect]
     Active Substance: FOLIC ACID
     Route: 065
  134. FOLIC ACID [Suspect]
     Active Substance: FOLIC ACID
     Route: 065
  135. FOLIC ACID [Suspect]
     Active Substance: FOLIC ACID
     Route: 065
  136. FOLIC ACID [Suspect]
     Active Substance: FOLIC ACID
     Route: 048
  137. FOLIC ACID [Suspect]
     Active Substance: FOLIC ACID
     Route: 065
  138. FOLIC ACID [Suspect]
     Active Substance: FOLIC ACID
     Route: 065
  139. FLUMETHASONE PIVALATE [Suspect]
     Active Substance: FLUMETHASONE PIVALATE
     Indication: Product used for unknown indication
     Route: 065
  140. FOSAMAX [Suspect]
     Active Substance: ALENDRONATE SODIUM
     Route: 016
  141. FOSAMAX [Suspect]
     Active Substance: ALENDRONATE SODIUM
     Route: 048
  142. FOSAMAX [Suspect]
     Active Substance: ALENDRONATE SODIUM
     Indication: Rheumatoid arthritis
     Route: 058
  143. FOSAMAX [Suspect]
     Active Substance: ALENDRONATE SODIUM
     Route: 065
  144. FOSAMAX [Suspect]
     Active Substance: ALENDRONATE SODIUM
     Route: 065
  145. HYRIMOZ [Suspect]
     Active Substance: ADALIMUMAB-ADAZ
     Route: 058
  146. HYRIMOZ [Suspect]
     Active Substance: ADALIMUMAB-ADAZ
     Route: 058
  147. HYRIMOZ [Suspect]
     Active Substance: ADALIMUMAB-ADAZ
     Route: 058
  148. HYRIMOZ [Suspect]
     Active Substance: ADALIMUMAB-ADAZ
     Route: 058
  149. HYRIMOZ [Suspect]
     Active Substance: ADALIMUMAB-ADAZ
     Indication: Rheumatoid arthritis
     Route: 058
  150. HYRIMOZ [Suspect]
     Active Substance: ADALIMUMAB-ADAZ
     Route: 058
  151. HYRIMOZ [Suspect]
     Active Substance: ADALIMUMAB-ADAZ
     Route: 058
  152. HYRIMOZ [Suspect]
     Active Substance: ADALIMUMAB-ADAZ
     Route: 058
  153. HYRIMOZ [Suspect]
     Active Substance: ADALIMUMAB-ADAZ
     Route: 058
  154. IMURAN [Suspect]
     Active Substance: AZATHIOPRINE
     Indication: Product used for unknown indication
     Route: 065
  155. INFLIXIMAB [Suspect]
     Active Substance: INFLIXIMAB
     Route: 065
  156. INFLIXIMAB [Suspect]
     Active Substance: INFLIXIMAB
     Route: 065
  157. INFLIXIMAB [Suspect]
     Active Substance: INFLIXIMAB
     Route: 042
  158. INFLIXIMAB [Suspect]
     Active Substance: INFLIXIMAB
     Route: 042
  159. INFLIXIMAB [Suspect]
     Active Substance: INFLIXIMAB
     Route: 065
  160. INFLIXIMAB [Suspect]
     Active Substance: INFLIXIMAB
     Route: 065
  161. INFLIXIMAB [Suspect]
     Active Substance: INFLIXIMAB
     Route: 065
  162. INFLIXIMAB [Suspect]
     Active Substance: INFLIXIMAB
     Indication: Rheumatoid arthritis
     Route: 042
  163. INFLIXIMAB [Suspect]
     Active Substance: INFLIXIMAB
     Route: 065
  164. INFLIXIMAB [Suspect]
     Active Substance: INFLIXIMAB
     Route: 065
  165. INFLIXIMAB [Suspect]
     Active Substance: INFLIXIMAB
     Route: 065
  166. INFLIXIMAB [Suspect]
     Active Substance: INFLIXIMAB
     Route: 042
  167. LEFLUNOMIDE [Suspect]
     Active Substance: LEFLUNOMIDE
     Dosage: 10 MG (1 EVERY 1 DAYS)
     Route: 065
  168. LEFLUNOMIDE [Suspect]
     Active Substance: LEFLUNOMIDE
     Dosage: 10 MG, 1 EVERY 1 DAYS
     Route: 048
  169. LEFLUNOMIDE [Suspect]
     Active Substance: LEFLUNOMIDE
     Dosage: UNK
     Route: 048
  170. LEFLUNOMIDE [Suspect]
     Active Substance: LEFLUNOMIDE
     Dosage: UNK
     Route: 065
  171. LEFLUNOMIDE [Suspect]
     Active Substance: LEFLUNOMIDE
     Dosage: 20 MG, 1 EVERY 1 DAYS
     Route: 065
  172. LEFLUNOMIDE [Suspect]
     Active Substance: LEFLUNOMIDE
     Indication: Rheumatoid arthritis
     Dosage: 20 MG, QD
     Route: 065
  173. LEFLUNOMIDE [Suspect]
     Active Substance: LEFLUNOMIDE
     Route: 065
  174. LEFLUNOMIDE [Suspect]
     Active Substance: LEFLUNOMIDE
     Route: 048
  175. LEFLUNOMIDE [Suspect]
     Active Substance: LEFLUNOMIDE
     Route: 048
  176. LEVOMILNACIPRAN [Suspect]
     Active Substance: LEVOMILNACIPRAN
     Indication: Product used for unknown indication
     Route: 065
  177. LEVOMILNACIPRAN [Suspect]
     Active Substance: LEVOMILNACIPRAN
     Indication: Product used for unknown indication
     Route: 065
  178. METHOTREXATE [Suspect]
     Active Substance: METHOTREXATE
     Route: 048
  179. METHOTREXATE [Suspect]
     Active Substance: METHOTREXATE
     Route: 048
  180. METHOTREXATE [Suspect]
     Active Substance: METHOTREXATE
     Route: 048
  181. METHOTREXATE [Suspect]
     Active Substance: METHOTREXATE
     Route: 048
  182. METHOTREXATE [Suspect]
     Active Substance: METHOTREXATE
     Dosage: 15 MG (1 EVERY 1 WEEKS)
     Route: 058
  183. METHOTREXATE [Suspect]
     Active Substance: METHOTREXATE
     Dosage: 15 MG, QW
     Route: 058
  184. METHOTREXATE [Suspect]
     Active Substance: METHOTREXATE
     Route: 058
  185. METHOTREXATE [Suspect]
     Active Substance: METHOTREXATE
     Dosage: 20 MG (1 EVERY 1 DAYS)
     Route: 048
  186. METHOTREXATE [Suspect]
     Active Substance: METHOTREXATE
     Dosage: 20 MG (1 EVERY 1 WEEKS)
     Route: 048
  187. METHOTREXATE [Suspect]
     Active Substance: METHOTREXATE
     Dosage: 20 MG, QW
     Route: 048
  188. METHOTREXATE [Suspect]
     Active Substance: METHOTREXATE
     Dosage: 20 MG, QW
     Route: 058
  189. METHOTREXATE [Suspect]
     Active Substance: METHOTREXATE
     Route: 065
  190. METHOTREXATE [Suspect]
     Active Substance: METHOTREXATE
     Route: 065
  191. METHOTREXATE [Suspect]
     Active Substance: METHOTREXATE
     Dosage: 25 MG (1 EVERY 1 WEEKS)
     Route: 013
  192. METHOTREXATE [Suspect]
     Active Substance: METHOTREXATE
     Dosage: 25 MG (1 EVERY 1 WEEKS)
     Route: 013
  193. METHOTREXATE [Suspect]
     Active Substance: METHOTREXATE
     Dosage: 25 MG (1 EVERY 1 WEEKS)
     Route: 048
  194. METHOTREXATE [Suspect]
     Active Substance: METHOTREXATE
     Dosage: 25 MG (1 EVERY 1 WEEKS)
     Route: 048
  195. METHOTREXATE [Suspect]
     Active Substance: METHOTREXATE
     Dosage: 25 MG (1 EVERY 1 WEEKS)
     Route: 065
  196. METHOTREXATE [Suspect]
     Active Substance: METHOTREXATE
     Dosage: 25 MG, QW
     Route: 013
  197. METHOTREXATE [Suspect]
     Active Substance: METHOTREXATE
     Dosage: 25 MG, QW
     Route: 058
  198. METHOTREXATE [Suspect]
     Active Substance: METHOTREXATE
     Dosage: 25 MG, QW
     Route: 065
  199. METHOTREXATE [Suspect]
     Active Substance: METHOTREXATE
     Dosage: 25 MG, QD (1 EVERY 1 DAYS )
     Route: 048
  200. METHOTREXATE [Suspect]
     Active Substance: METHOTREXATE
     Dosage: 25 MG, QD (1 EVERY 1 DAYS )
     Route: 048
  201. METHOTREXATE [Suspect]
     Active Substance: METHOTREXATE
     Indication: Rheumatoid arthritis
     Route: 013
  202. METHOTREXATE [Suspect]
     Active Substance: METHOTREXATE
     Route: 013
  203. METHOTREXATE [Suspect]
     Active Substance: METHOTREXATE
     Route: 048
  204. METHOTREXATE [Suspect]
     Active Substance: METHOTREXATE
     Route: 048
  205. METHOTREXATE [Suspect]
     Active Substance: METHOTREXATE
     Route: 048
  206. METHOTREXATE [Suspect]
     Active Substance: METHOTREXATE
     Route: 048
  207. METHOTREXATE [Suspect]
     Active Substance: METHOTREXATE
     Route: 058
  208. METHOTREXATE [Suspect]
     Active Substance: METHOTREXATE
     Route: 058
  209. METHOTREXATE [Suspect]
     Active Substance: METHOTREXATE
     Route: 065
  210. METHOTREXATE [Suspect]
     Active Substance: METHOTREXATE
     Route: 065
  211. METHOTREXATE [Suspect]
     Active Substance: METHOTREXATE
     Route: 065
  212. METHOTREXATE [Suspect]
     Active Substance: METHOTREXATE
     Route: 048
  213. METHOTREXATE [Suspect]
     Active Substance: METHOTREXATE
     Dosage: 50 MG (1 EVERY 1 DAYS)
     Route: 048
  214. METHOTREXATE [Suspect]
     Active Substance: METHOTREXATE
     Route: 048
  215. METHOTREXATE [Suspect]
     Active Substance: METHOTREXATE
     Route: 016
  216. METHOTREXATE [Suspect]
     Active Substance: METHOTREXATE
     Route: 016
  217. METHOTREXATE [Suspect]
     Active Substance: METHOTREXATE
     Route: 065
  218. OXYCODONE [Suspect]
     Active Substance: OXYCODONE
     Indication: Product used for unknown indication
     Route: 065
  219. OXYCODONE [Suspect]
     Active Substance: OXYCODONE
     Route: 065
  220. PHENYLEPHRINE HYDROCHLORIDE [Suspect]
     Active Substance: PHENYLEPHRINE HYDROCHLORIDE
     Indication: Rheumatoid arthritis
     Route: 065
  221. PANADOL [Suspect]
     Active Substance: ACETAMINOPHEN
     Indication: Rheumatoid arthritis
     Route: 065
  222. PANADOL [Suspect]
     Active Substance: ACETAMINOPHEN
     Route: 065
  223. ACETAMINOPHEN [Suspect]
     Active Substance: ACETAMINOPHEN
     Route: 058
  224. ACETAMINOPHEN [Suspect]
     Active Substance: ACETAMINOPHEN
     Indication: Product used for unknown indication
     Route: 065
  225. ACETAMINOPHEN [Suspect]
     Active Substance: ACETAMINOPHEN
     Route: 065
  226. RAMIPRIL [Suspect]
     Active Substance: RAMIPRIL
     Route: 016
  227. RAMIPRIL [Suspect]
     Active Substance: RAMIPRIL
     Indication: Off label use
     Route: 065
  228. RAMIPRIL [Suspect]
     Active Substance: RAMIPRIL
     Indication: Rheumatoid arthritis
     Route: 065
  229. RAMIPRIL [Suspect]
     Active Substance: RAMIPRIL
     Route: 065
  230. RITUXIMAB [Suspect]
     Active Substance: RITUXIMAB
     Indication: Rheumatoid arthritis
     Dosage: 1 G, Q24H (INTRAVENOUS BOLUS)
     Route: 040
  231. RITUXIMAB [Suspect]
     Active Substance: RITUXIMAB
     Dosage: 1 G, Q24H (INTRAVENOUS BOLUS)
     Route: 040
  232. RITUXIMAB [Suspect]
     Active Substance: RITUXIMAB
     Dosage: 1 G, Q24H (INTRAVENOUS BOLUS)
     Route: 040
  233. RITUXIMAB [Suspect]
     Active Substance: RITUXIMAB
     Dosage: 1 G, Q24H (INTRAVENOUS BOLUS)
     Route: 040
  234. RITUXIMAB [Suspect]
     Active Substance: RITUXIMAB
     Dosage: 1 G, Q24H (INTRAVENOUS BOLUS)
     Route: 040
  235. RITUXIMAB [Suspect]
     Active Substance: RITUXIMAB
     Dosage: 1 G, Q24H (INTRAVENOUS BOLUS)
     Route: 040
  236. RITUXIMAB [Suspect]
     Active Substance: RITUXIMAB
     Dosage: 1 G, Q24H (INTRAVENOUS BOLUS)
     Route: 040
  237. RITUXIMAB [Suspect]
     Active Substance: RITUXIMAB
     Route: 042
  238. RITUXIMAB [Suspect]
     Active Substance: RITUXIMAB
     Route: 042
  239. RITUXIMAB [Suspect]
     Active Substance: RITUXIMAB
     Route: 042
  240. RITUXIMAB [Suspect]
     Active Substance: RITUXIMAB
     Route: 042
  241. RITUXIMAB [Suspect]
     Active Substance: RITUXIMAB
     Route: 042
  242. RITUXIMAB [Suspect]
     Active Substance: RITUXIMAB
     Route: 042
  243. RITUXIMAB [Suspect]
     Active Substance: RITUXIMAB
     Dosage: UNK
     Route: 042
  244. RITUXIMAB [Suspect]
     Active Substance: RITUXIMAB
     Route: 042
  245. RITUXIMAB [Suspect]
     Active Substance: RITUXIMAB
     Route: 065
  246. RITUXIMAB [Suspect]
     Active Substance: RITUXIMAB
     Dosage: 2000 MG (1 EVERY 1 DAYS)
     Route: 042
  247. RITUXIMAB [Suspect]
     Active Substance: RITUXIMAB
     Dosage: 2000 MG (1 EVERY 1 DAYS)
     Route: 065
  248. RITUXIMAB [Suspect]
     Active Substance: RITUXIMAB
     Dosage: 2000 MG (1 EVERY 1 DAYS)
     Route: 065
  249. RITUXIMAB [Suspect]
     Active Substance: RITUXIMAB
     Dosage: 2000 MG (1 EVERY 1 DAYS)
     Route: 065
  250. RITUXIMAB [Suspect]
     Active Substance: RITUXIMAB
     Dosage: 2000 MG (1 EVERY 1 DAYS)
     Route: 065
  251. RITUXIMAB [Suspect]
     Active Substance: RITUXIMAB
     Route: 042
  252. RITUXIMAB [Suspect]
     Active Substance: RITUXIMAB
     Dosage: 365 MG
     Route: 065
  253. RITUXIMAB [Suspect]
     Active Substance: RITUXIMAB
     Dosage: 365 MG (1 EVERY 1 DAYS)
     Route: 065
  254. RITUXIMAB [Suspect]
     Active Substance: RITUXIMAB
     Dosage: 365 MG (1 EVERY 1 DAYS)
     Route: 065
  255. RITUXIMAB [Suspect]
     Active Substance: RITUXIMAB
     Route: 065
  256. RITUXIMAB [Suspect]
     Active Substance: RITUXIMAB
     Route: 016
  257. RITUXIMAB [Suspect]
     Active Substance: RITUXIMAB
     Route: 016
  258. RITUXIMAB [Suspect]
     Active Substance: RITUXIMAB
     Route: 016
  259. RITUXIMAB [Suspect]
     Active Substance: RITUXIMAB
     Route: 016
  260. RITUXIMAB [Suspect]
     Active Substance: RITUXIMAB
     Route: 016
  261. RITUXIMAB [Suspect]
     Active Substance: RITUXIMAB
     Route: 016
  262. RITUXIMAB [Suspect]
     Active Substance: RITUXIMAB
     Route: 016
  263. RITUXIMAB [Suspect]
     Active Substance: RITUXIMAB
     Route: 016
  264. RITUXIMAB [Suspect]
     Active Substance: RITUXIMAB
     Route: 043
  265. RITUXIMAB [Suspect]
     Active Substance: RITUXIMAB
     Route: 043
  266. RITUXIMAB [Suspect]
     Active Substance: RITUXIMAB
     Route: 043
  267. RITUXIMAB [Suspect]
     Active Substance: RITUXIMAB
     Route: 043
  268. RITUXIMAB [Suspect]
     Active Substance: RITUXIMAB
     Route: 043
  269. RITUXIMAB [Suspect]
     Active Substance: RITUXIMAB
     Route: 058
  270. RITUXIMAB [Suspect]
     Active Substance: RITUXIMAB
     Route: 058
  271. RITUXIMAB [Suspect]
     Active Substance: RITUXIMAB
     Route: 058
  272. RITUXIMAB [Suspect]
     Active Substance: RITUXIMAB
     Route: 058
  273. RITUXIMAB [Suspect]
     Active Substance: RITUXIMAB
     Route: 065
  274. SULFASALAZINE [Suspect]
     Active Substance: SULFASALAZINE
     Indication: Rheumatoid arthritis
     Route: 065
  275. COD LIVER OIL [Suspect]
     Active Substance: COD LIVER OIL
     Indication: Product used for unknown indication
     Route: 065
  276. SIRUKUMAB [Suspect]
     Active Substance: SIRUKUMAB
     Route: 065
  277. SIRUKUMAB [Suspect]
     Active Substance: SIRUKUMAB
     Indication: Product used for unknown indication
     Route: 065
  278. GOLD SODIUM THIOMALATE [Suspect]
     Active Substance: GOLD SODIUM THIOMALATE
     Route: 048
  279. GOLD SODIUM THIOMALATE [Suspect]
     Active Substance: GOLD SODIUM THIOMALATE
     Route: 065
  280. GOLD SODIUM THIOMALATE [Suspect]
     Active Substance: GOLD SODIUM THIOMALATE
     Indication: Product used for unknown indication
     Route: 065
  281. STELARA [Suspect]
     Active Substance: USTEKINUMAB
     Indication: Rheumatoid arthritis
     Route: 058
  282. SULFASALAZINE [Suspect]
     Active Substance: SULFASALAZINE
     Indication: Rheumatoid arthritis
     Route: 058
  283. SULFASALAZINE [Suspect]
     Active Substance: SULFASALAZINE
     Route: 065
  284. SULFASALAZINE [Suspect]
     Active Substance: SULFASALAZINE
     Route: 048
  285. SULFASALAZINE [Suspect]
     Active Substance: SULFASALAZINE
     Route: 048
  286. SULFASALAZINE [Suspect]
     Active Substance: SULFASALAZINE
     Route: 065
  287. SULFASALAZINE [Suspect]
     Active Substance: SULFASALAZINE
     Dosage: 1000 MG, QD
     Route: 048
  288. SULFASALAZINE [Suspect]
     Active Substance: SULFASALAZINE
     Dosage: 2 G, QD
     Route: 058
  289. SULFASALAZINE [Suspect]
     Active Substance: SULFASALAZINE
     Dosage: 2 G, QD
     Route: 065
  290. SULFASALAZINE [Suspect]
     Active Substance: SULFASALAZINE
     Dosage: 2 DF, QD
     Route: 048
  291. SULFASALAZINE [Suspect]
     Active Substance: SULFASALAZINE
     Dosage: 2000 MG, QD
     Route: 048
  292. SULFASALAZINE [Suspect]
     Active Substance: SULFASALAZINE
     Dosage: 300 MG, QD
     Route: 065
  293. SULFASALAZINE [Suspect]
     Active Substance: SULFASALAZINE
     Route: 058
  294. SULFASALAZINE [Suspect]
     Active Substance: SULFASALAZINE
     Route: 058
  295. SULFASALAZINE [Suspect]
     Active Substance: SULFASALAZINE
     Route: 016
  296. SULFASALAZINE [Suspect]
     Active Substance: SULFASALAZINE
     Route: 048
  297. SULFASALAZINE [Suspect]
     Active Substance: SULFASALAZINE
     Route: 048
  298. SULFASALAZINE [Suspect]
     Active Substance: SULFASALAZINE
     Route: 058
  299. SULFASALAZINE [Suspect]
     Active Substance: SULFASALAZINE
     Route: 065
  300. SULFASALAZINE [Suspect]
     Active Substance: SULFASALAZINE
     Route: 065
  301. SULFASALAZINE [Suspect]
     Active Substance: SULFASALAZINE
     Route: 065
  302. SULFASALAZINE [Suspect]
     Active Substance: SULFASALAZINE
     Route: 065
  303. TOPIRAMATE [Suspect]
     Active Substance: TOPIRAMATE
     Indication: Migraine
     Dosage: 25 MG (1 EVERY 1 DAYS)
     Route: 065
  304. TOPIRAMATE [Suspect]
     Active Substance: TOPIRAMATE
     Dosage: 25 MG (1 EVERY 1 DAYS)
     Route: 065
  305. TOPIRAMATE [Suspect]
     Active Substance: TOPIRAMATE
     Dosage: 3 MG (1 EVERY 1 DAYS)
     Route: 065
  306. TRAMADOL HYDROCHLORIDE [Suspect]
     Active Substance: TRAMADOL HYDROCHLORIDE
     Indication: Rheumatoid arthritis
     Route: 065
  307. TRIAMCINOLONE ACETONIDE [Suspect]
     Active Substance: TRIAMCINOLONE ACETONIDE
     Route: 013
  308. TRIAMCINOLONE ACETONIDE [Suspect]
     Active Substance: TRIAMCINOLONE ACETONIDE
     Indication: Rheumatoid arthritis
     Route: 014
  309. TRIAMCINOLONE ACETONIDE [Suspect]
     Active Substance: TRIAMCINOLONE ACETONIDE
     Route: 014
  310. TRIAMCINOLONE ACETONIDE [Suspect]
     Active Substance: TRIAMCINOLONE ACETONIDE
     Route: 014
  311. TRIAMCINOLONE ACETONIDE [Suspect]
     Active Substance: TRIAMCINOLONE ACETONIDE
     Route: 065
  312. TRIAMCINOLONE ACETONIDE [Suspect]
     Active Substance: TRIAMCINOLONE ACETONIDE
     Route: 065
  313. TUMS ULTRA [Suspect]
     Active Substance: CALCIUM CARBONATE
     Indication: Product used for unknown indication
     Route: 065
  314. VITAMIN D3 [Suspect]
     Active Substance: CHOLECALCIFEROL
     Indication: Product used for unknown indication
     Route: 065
  315. DICLOFENAC DIETHYLAMINE [Suspect]
     Active Substance: DICLOFENAC DIETHYLAMINE
     Indication: Product used for unknown indication
     Route: 065
  316. ZYRTEC [Suspect]
     Active Substance: CETIRIZINE HYDROCHLORIDE
     Indication: Rheumatoid arthritis
     Route: 065
  317. ZYRTEC [Suspect]
     Active Substance: CETIRIZINE HYDROCHLORIDE
     Route: 065
  318. DESOGESTREL\ETHINYL ESTRADIOL [Concomitant]
     Active Substance: DESOGESTREL\ETHINYL ESTRADIOL
     Indication: Product used for unknown indication
     Route: 065
  319. NAPROXEN [Concomitant]
     Active Substance: NAPROXEN
     Indication: Product used for unknown indication
     Dosage: 500 MG (1 EVERY 1 DAYS)
     Route: 065

REACTIONS (52)
  - Finger deformity [Fatal]
  - Abdominal distension [Fatal]
  - Adverse reaction [Fatal]
  - Back injury [Fatal]
  - Bursitis [Fatal]
  - Coeliac disease [Fatal]
  - Condition aggravated [Fatal]
  - Dyspepsia [Fatal]
  - Fall [Fatal]
  - Folliculitis [Fatal]
  - Gait inability [Fatal]
  - Gastrointestinal disorder [Fatal]
  - Gastrooesophageal reflux disease [Fatal]
  - Grip strength decreased [Fatal]
  - Headache [Fatal]
  - Hepatitis [Fatal]
  - Hypoaesthesia [Fatal]
  - Injury [Fatal]
  - Insomnia [Fatal]
  - Liver function test increased [Fatal]
  - Malaise [Fatal]
  - Mobility decreased [Fatal]
  - Muscular weakness [Fatal]
  - Musculoskeletal stiffness [Fatal]
  - Nail disorder [Fatal]
  - Neck pain [Fatal]
  - Pain in extremity [Fatal]
  - Pneumonia [Fatal]
  - Weight increased [Fatal]
  - Wheezing [Fatal]
  - Wound infection [Fatal]
  - Dizziness [Fatal]
  - Depression [Fatal]
  - Nasopharyngitis [Fatal]
  - Vomiting [Fatal]
  - Hand deformity [Fatal]
  - General physical health deterioration [Fatal]
  - Duodenal ulcer perforation [Fatal]
  - Facet joint syndrome [Fatal]
  - Dry mouth [Fatal]
  - Swelling [Fatal]
  - Asthenia [Fatal]
  - Breast cancer stage III [Fatal]
  - Blister [Fatal]
  - Blepharospasm [Fatal]
  - Hypercholesterolaemia [Fatal]
  - Inflammation [Fatal]
  - Synovitis [Fatal]
  - Exposure during pregnancy [Fatal]
  - Product label confusion [Fatal]
  - Intentional product use issue [Fatal]
  - Off label use [Fatal]
